FAERS Safety Report 18544898 (Version 1)
Quarter: 2020Q4

REPORT INFORMATION
  Report Type: Spontaneous
  Country: US (occurrence: US)
  Receive Date: 20201124
  Receipt Date: 20201124
  Transmission Date: 20210114
  Serious: No
  Sender: FDA-Public Use
  Company Number: None

PATIENT
  Age: 73 Year
  Sex: Male

DRUGS (25)
  1. BRILINTA [Suspect]
     Active Substance: TICAGRELOR
  2. KLOR-CON [Suspect]
     Active Substance: POTASSIUM CHLORIDE
  3. BICALUTAMIDE. [Suspect]
     Active Substance: BICALUTAMIDE
  4. CRESTOR [Suspect]
     Active Substance: ROSUVASTATIN CALCIUM
  5. MAGNESIUM [Suspect]
     Active Substance: MAGNESIUM
  6. SYNTHROID [Suspect]
     Active Substance: LEVOTHYROXINE SODIUM
  7. COMPAZINE [Suspect]
     Active Substance: PROCHLORPERAZINE MALEATE
  8. CARDURA [Suspect]
     Active Substance: DOXAZOSIN MESYLATE
  9. TOPROL XL [Suspect]
     Active Substance: METOPROLOL SUCCINATE
  10. OXYCODONE HYDROCHLORIDE. [Suspect]
     Active Substance: OXYCODONE HYDROCHLORIDE
  11. INLYTA [Suspect]
     Active Substance: AXITINIB
     Indication: RENAL CANCER
     Route: 048
     Dates: start: 20200620
  12. INLYTA [Suspect]
     Active Substance: AXITINIB
     Indication: RENAL CANCER
  13. NEXIUM [Suspect]
     Active Substance: ESOMEPRAZOLE MAGNESIUM
  14. ZANTAC [Suspect]
     Active Substance: RANITIDINE HYDROCHLORIDE
  15. CASODEX [Suspect]
     Active Substance: BICALUTAMIDE
  16. VITAMIN D3 [Suspect]
     Active Substance: CHOLECALCIFEROL
  17. IRON [Suspect]
     Active Substance: IRON
  18. CALCIUM [Suspect]
     Active Substance: CALCIUM
  19. TRAMADOL HCL [Suspect]
     Active Substance: TRAMADOL HYDROCHLORIDE
  20. ASPIRIN ENTERIC COATED AD [Suspect]
     Active Substance: ASPIRIN
  21. PEPCID [Suspect]
     Active Substance: FAMOTIDINE
  22. DOXAZOSIN MESYLATE. [Suspect]
     Active Substance: DOXAZOSIN MESYLATE
  23. METOPROLOL SUCCINATE ER [Suspect]
     Active Substance: METOPROLOL SUCCINATE
  24. AVELOX ABC PACK [Suspect]
     Active Substance: MOXIFLOXACIN HYDROCHLORIDE
  25. NITROSTAT [Suspect]
     Active Substance: NITROGLYCERIN

REACTIONS (1)
  - Myocardial infarction [None]
